FAERS Safety Report 5473302-8 (Version None)
Quarter: 2007Q3

REPORT INFORMATION
  Report Type: 
  Country: None (occurrence: None)
  Receive Date: 20070926
  Receipt Date: 20070613
  Transmission Date: 20080115
  Serious: Yes (Other)
  Sender: FDA-Public Use
  Company Number: 2007048484

PATIENT
  Age: 4 Year
  Sex: Male
  Weight: 20 kg

DRUGS (2)
  1. ZYRTEC [Suspect]
     Indication: SEASONAL ALLERGY
     Dosage: 10MG QD EVERYDAY TID:10MG
     Dates: start: 20070401, end: 20070401
  2. ALL OTHER THERAPEUTIC PRODUCTS (ALL OTHER THERAPEUTIC PRODUCTS) [Concomitant]

REACTIONS (4)
  - ANAPHYLACTIC REACTION [None]
  - HYPERSENSITIVITY [None]
  - RASH [None]
  - RASH PRURITIC [None]
